FAERS Safety Report 18992595 (Version 1)
Quarter: 2021Q1

REPORT INFORMATION
  Report Type: Report from Study
  Country: PK (occurrence: PK)
  Receive Date: 20210310
  Receipt Date: 20210310
  Transmission Date: 20210420
  Serious: Yes (Other)
  Sender: FDA-Public Use
  Company Number: NVSC2021PK042655

PATIENT
  Age: 11 Year
  Sex: Male

DRUGS (2)
  1. SANDIMMUN NEORAL [Suspect]
     Active Substance: CYCLOSPORINE
     Indication: RENAL TRANSPLANT
     Dosage: 1 ML, BID
     Route: 048
     Dates: start: 20181015, end: 202102
  2. SANDIMMUN NEORAL [Suspect]
     Active Substance: CYCLOSPORINE
     Dosage: 0.75 ML, BID
     Route: 065

REACTIONS (1)
  - Immunosuppressant drug level increased [Unknown]

NARRATIVE: CASE EVENT DATE: 202011
